FAERS Safety Report 9028661 (Version 1)
Quarter: 2013Q1

REPORT INFORMATION
  Report Type: Spontaneous
  Country: MX (occurrence: MX)
  Receive Date: 20130124
  Receipt Date: 20130124
  Transmission Date: 20140127
  Serious: Yes (Other)
  Sender: FDA-Public Use
  Company Number: PHHY2013MX005782

PATIENT
  Age: 73 Year
  Sex: Female

DRUGS (3)
  1. CO-DIOVAN [Suspect]
     Indication: HYPERTENSION
     Dosage: 1 DF (160/25MG) DAILY
     Route: 048
     Dates: start: 201209
  2. ONBREZ [Suspect]
     Dosage: 1 UKN, DAILY
  3. MIFLONIDE [Suspect]
     Dosage: 2 UKN, DAILY
     Dates: start: 201207

REACTIONS (1)
  - Anaemia [Recovered/Resolved]
